FAERS Safety Report 18749372 (Version 11)
Quarter: 2022Q2

REPORT INFORMATION
  Report Type: Report from Study
  Country: BR (occurrence: BR)
  Receive Date: 20210116
  Receipt Date: 20220422
  Transmission Date: 20220720
  Serious: Yes (Hospitalization, Other)
  Sender: FDA-Public Use
  Company Number: NVSC2021BR004190

PATIENT
  Age: 58 Year
  Sex: Female
  Weight: 76 kg

DRUGS (15)
  1. COSENTYX [Suspect]
     Active Substance: SECUKINUMAB
     Indication: Psoriasis
     Dosage: 300 MG, QMO (TWO AMPOULES, 2 CATRIDGES OF 150MG)
     Route: 058
     Dates: start: 20200306
  2. COSENTYX [Suspect]
     Active Substance: SECUKINUMAB
     Dosage: UNK
     Route: 065
     Dates: start: 20200309
  3. COSENTYX [Suspect]
     Active Substance: SECUKINUMAB
     Dosage: UNK
     Route: 065
     Dates: start: 20210519
  4. PURAN [Concomitant]
     Active Substance: LEVOTHYROXINE SODIUM
     Indication: Thyroid disorder
     Dosage: 100 MG
     Route: 065
  5. PURAN [Concomitant]
     Active Substance: LEVOTHYROXINE SODIUM
     Dosage: UNK (100 (UNIT NOT SPECIFIED))
     Route: 065
  6. PURAN [Concomitant]
     Active Substance: LEVOTHYROXINE SODIUM
     Dosage: 100 MG, QD (ONCE A DAY FASTING)
     Route: 048
     Dates: start: 2014
  7. TRAZODONE HYDROCHLORIDE [Concomitant]
     Active Substance: TRAZODONE HYDROCHLORIDE
     Indication: Somnolence
     Route: 065
  8. TRAZODONE HYDROCHLORIDE [Concomitant]
     Active Substance: TRAZODONE HYDROCHLORIDE
     Dosage: 1 DOSAGE FORM, QD
     Route: 048
  9. CRESTOR [Concomitant]
     Active Substance: ROSUVASTATIN CALCIUM
     Indication: Blood cholesterol abnormal
     Route: 065
  10. CRESTOR [Concomitant]
     Active Substance: ROSUVASTATIN CALCIUM
     Dosage: 1 DOSAGE FORM
     Route: 048
  11. GABAPENTIN [Concomitant]
     Active Substance: GABAPENTIN
     Indication: Pain
     Dosage: 4 DOSAGE FORM, BID
     Route: 048
  12. ESOMEPRAZOLE [Concomitant]
     Active Substance: ESOMEPRAZOLE
     Indication: Gastrooesophageal reflux disease
     Dosage: 1 DOSAGE FORM, QD
     Route: 065
  13. ESOMEPRAZOLE [Concomitant]
     Active Substance: ESOMEPRAZOLE
     Dosage: 1 DOSAGE FORM, QD (IN FASTING)
     Route: 048
  14. ESCITALOPRAM OXALATE [Concomitant]
     Active Substance: ESCITALOPRAM OXALATE
     Indication: Anxiety
     Dosage: UNK
     Route: 048
  15. ESCITALOPRAM [Concomitant]
     Active Substance: ESCITALOPRAM OXALATE
     Indication: Anxiety disorder
     Dosage: 1 DOSAGE FORM, QD (IN THE MORNING)
     Route: 048

REACTIONS (29)
  - COVID-19 [Recovered/Resolved]
  - Diarrhoea [Recovered/Resolved]
  - Dyspnoea [Recovered/Resolved with Sequelae]
  - Pain in extremity [Not Recovered/Not Resolved]
  - Pain [Recovered/Resolved]
  - Headache [Recovered/Resolved]
  - Vomiting [Recovered/Resolved with Sequelae]
  - Pyrexia [Recovered/Resolved]
  - Feeling abnormal [Recovered/Resolved with Sequelae]
  - Dyspnoea [Recovered/Resolved]
  - Muscular weakness [Not Recovered/Not Resolved]
  - Lung disorder [Recovering/Resolving]
  - Oral herpes [Recovered/Resolved with Sequelae]
  - Polyneuropathy [Recovering/Resolving]
  - Dry mouth [Recovering/Resolving]
  - Vulvovaginal discomfort [Recovering/Resolving]
  - Alopecia [Not Recovered/Not Resolved]
  - Hyperadrenocorticism [Recovered/Resolved]
  - Aphthous ulcer [Not Recovered/Not Resolved]
  - Psoriasis [Recovering/Resolving]
  - Amnesia [Not Recovered/Not Resolved]
  - Blood glucose increased [Recovered/Resolved]
  - Memory impairment [Not Recovered/Not Resolved]
  - Weight increased [Recovering/Resolving]
  - Exposure to SARS-CoV-2 [Recovered/Resolved]
  - Viral diarrhoea [Recovered/Resolved]
  - Gastrointestinal infection [Recovered/Resolved]
  - Product availability issue [Unknown]
  - Drug ineffective [Unknown]

NARRATIVE: CASE EVENT DATE: 20200101
